FAERS Safety Report 21688088 (Version 1)
Quarter: 2022Q4

REPORT INFORMATION
  Report Type: Spontaneous
  Country: US (occurrence: US)
  Receive Date: 20221206
  Receipt Date: 20221206
  Transmission Date: 20230113
  Serious: Yes (Death, Life-Threatening)
  Sender: FDA-Public Use
  Company Number: US-Vifor (International) Inc.-VIT-2022-08386

PATIENT
  Age: 58 Year
  Sex: Female
  Weight: 103.6 kg

DRUGS (2)
  1. MIRCERA [Suspect]
     Active Substance: METHOXY POLYETHYLENE GLYCOL-EPOETIN BETA
     Indication: Anaemia
     Route: 042
     Dates: start: 20221112, end: 20221126
  2. CALCITRIOL [Concomitant]
     Active Substance: CALCITRIOL

REACTIONS (3)
  - Unresponsive to stimuli [Fatal]
  - Pulse absent [Fatal]
  - Blood pressure abnormal [Fatal]

NARRATIVE: CASE EVENT DATE: 20221126
